FAERS Safety Report 4432553-1 (Version None)
Quarter: 2004Q3

REPORT INFORMATION
  Report Type: 
  Country: None (occurrence: None)
  Receive Date: 20040820
  Receipt Date: 20040811
  Transmission Date: 20050211
  Serious: Yes (Hospitalization, Other)
  Sender: FDA-Public Use
  Company Number: 200413976BCC

PATIENT
  Age: 34 Year
  Sex: Female
  Weight: 122.4712 kg

DRUGS (14)
  1. MIDOL MAXIMUM PMS CAPLETS [Suspect]
     Indication: DYSMENORRHOEA
     Dosage: 3000 MG, QID,ORAL
     Route: 048
     Dates: start: 20040713, end: 20040716
  2. REMERON [Concomitant]
  3. PERCOCET [Concomitant]
  4. NOVOLOG [Concomitant]
  5. TRACLEER [Concomitant]
  6. LEVBID [Concomitant]
  7. LAMICTAL [Concomitant]
  8. CLARITIN [Concomitant]
  9. ASPIRIN [Concomitant]
  10. PRILOSEC [Concomitant]
  11. ADVAIR DISKUS 100/50 [Concomitant]
  12. COMBIVENT [Concomitant]
  13. COUMADIN [Concomitant]
  14. SINGULAIR [Concomitant]

REACTIONS (3)
  - BLOOD POTASSIUM DECREASED [None]
  - DEHYDRATION [None]
  - DRUG SCREEN FALSE POSITIVE [None]
